FAERS Safety Report 23968994 (Version 1)
Quarter: 2024Q2

REPORT INFORMATION
  Report Type: Spontaneous
  Country: US (occurrence: None)
  Receive Date: 20240612
  Receipt Date: 20240612
  Transmission Date: 20240716
  Serious: Yes (Hospitalization)
  Sender: FDA-Public Use
  Company Number: None

PATIENT
  Sex: 0

DRUGS (1)
  1. RYSTIGGO [Suspect]
     Active Substance: ROZANOLIXIZUMAB-NOLI

REACTIONS (5)
  - Myasthenia gravis [None]
  - Hypercalcaemia [None]
  - Acute kidney injury [None]
  - Asthenia [None]
  - Dysphagia [None]
